FAERS Safety Report 10335731 (Version 2)
Quarter: 2014Q3

REPORT INFORMATION
  Report Type: Spontaneous
  Country: US (occurrence: US)
  Receive Date: 20140723
  Receipt Date: 20140723
  Transmission Date: 20150326
  Serious: No
  Sender: FDA-Public Use
  Company Number: US-BRISTOL-MYERS SQUIBB COMPANY-19072669

PATIENT
  Age: 89 Year
  Sex: Male
  Weight: 70.75 kg

DRUGS (5)
  1. DIGOXIN. [Concomitant]
     Active Substance: DIGOXIN
  2. ASPIRIN. [Concomitant]
     Active Substance: ASPIRIN
  3. WARFARIN SODIUM. [Suspect]
     Active Substance: WARFARIN SODIUM
     Indication: ATRIAL FIBRILLATION
     Dosage: LAST DOSE JAN2011
     Dates: start: 201003
  4. METOPROLOL [Concomitant]
     Active Substance: METOPROLOL
  5. PRADAXA [Concomitant]
     Active Substance: DABIGATRAN ETEXILATE MESYLATE
     Dates: start: 2011

REACTIONS (1)
  - Dizziness [Unknown]
